FAERS Safety Report 6291328-1 (Version None)
Quarter: 2009Q3

REPORT INFORMATION
  Report Type: 
  Country: None (occurrence: None)
  Receive Date: 20090728
  Receipt Date: 20081117
  Transmission Date: 20100115
  Serious: Yes (Death)
  Sender: FDA-Public Use
  Company Number: 271145

PATIENT
  Age: 76 Year
  Sex: Female
  Weight: 71.7 kg

DRUGS (2)
  1. TNKASE [Suspect]
     Indication: MYOCARDIAL INFARCTION
     Dosage: 7 ML, SINGLE, INTRAVENOUS
     Route: 042
     Dates: start: 20081015
  2. HEPARIN [Concomitant]

REACTIONS (1)
  - HAEMORRHAGE INTRACRANIAL [None]
